FAERS Safety Report 5450808-9 (Version None)
Quarter: 2007Q3

REPORT INFORMATION
  Report Type: 
  Country: None (occurrence: None)
  Receive Date: 20070803
  Receipt Date: 20060911
  Transmission Date: 20080115
  Serious: Yes (Hospitalization)
  Sender: FDA-Public Use
  Company Number: US-JNJFOC-20060902770

PATIENT
  Age: 28 Year
  Sex: Female
  Weight: 83.9 kg

DRUGS (4)
  1. TYLENOL [Suspect]
     Indication: DRUG USE FOR UNKNOWN INDICATION
     Dosage: 20000 MG, 1 IN 1 DAY
     Dates: start: 20060908, end: 20060908
  2. TOPAMAX [Concomitant]
  3. LAMICTAL [Concomitant]
  4. SEROQUEL [Concomitant]

REACTIONS (2)
  - HEPATIC ENZYME INCREASED [None]
  - INTENTIONAL OVERDOSE [None]
